FAERS Safety Report 21207983 (Version 7)
Quarter: 2025Q3

REPORT INFORMATION
  Report Type: Spontaneous
  Country: US (occurrence: US)
  Receive Date: 20220812
  Receipt Date: 20250918
  Transmission Date: 20251021
  Serious: Yes (Other)
  Sender: PFIZER
  Company Number: US-PFIZER INC-PV202200042068

PATIENT
  Age: 74 Year
  Sex: Female
  Weight: 53.52 kg

DRUGS (3)
  1. IBRANCE [Suspect]
     Active Substance: PALBOCICLIB
     Indication: Breast cancer female
     Route: 048
     Dates: start: 201807, end: 202509
  2. IBRANCE [Suspect]
     Active Substance: PALBOCICLIB
     Indication: Metastases to bone
  3. IBRANCE [Suspect]
     Active Substance: PALBOCICLIB
     Indication: Breast cancer metastatic

REACTIONS (6)
  - Malignant neoplasm progression [Unknown]
  - Metastases to bone [Unknown]
  - White blood cell count abnormal [Unknown]
  - COVID-19 [Unknown]
  - Urinary tract infection [Recovering/Resolving]
  - Product dispensing error [Unknown]
